FAERS Safety Report 6414705-4 (Version None)
Quarter: 2009Q4

REPORT INFORMATION
  Report Type: 
  Country: None (occurrence: None)
  Receive Date: 20091026
  Receipt Date: 20091022
  Transmission Date: 20100525
  Serious: Yes (Death, Hospitalization, Other)
  Sender: FDA-Public Use
  Company Number: US-ABBOTT-09P-163-0604135-00

PATIENT
  Sex: Male
  Weight: 74.456 kg

DRUGS (4)
  1. HUMIRA [Suspect]
     Indication: RHEUMATOID ARTHRITIS
     Dates: start: 20090101, end: 20091021
  2. FOLIC ACID [Concomitant]
     Indication: RHEUMATOID ARTHRITIS
     Dates: end: 20091021
  3. BENICAR [Concomitant]
     Indication: HYPERTENSION
     Dates: end: 20091021
  4. SULAR [Concomitant]
     Indication: DRUG USE FOR UNKNOWN INDICATION
     Dates: end: 20091021

REACTIONS (10)
  - CEREBRAL HAEMORRHAGE [None]
  - CEREBROVASCULAR ACCIDENT [None]
  - FALL [None]
  - HEAD INJURY [None]
  - HEADACHE [None]
  - HEMIPLEGIA [None]
  - INCOHERENT [None]
  - MYOCARDIAL INFARCTION [None]
  - RENAL FAILURE [None]
  - SPEECH DISORDER [None]
